FAERS Safety Report 6279807-4 (Version None)
Quarter: 2009Q3

REPORT INFORMATION
  Report Type: 
  Country: None (occurrence: None)
  Receive Date: 20090721
  Receipt Date: 20090708
  Transmission Date: 20100115
  Serious: Yes (Hospitalization)
  Sender: FDA-Public Use
  Company Number: 2009-196476-NL

PATIENT
  Age: 13 Day
  Sex: Male

DRUGS (8)
  1. VECURONIUM BROMIDE [Suspect]
     Dosage: INTRAVENOUS (NOS)
     Route: 042
     Dates: start: 20090403, end: 20090411
  2. FENTANYL CITRATE [Suspect]
     Indication: SEDATION
     Dosage: INTRAVENOUS (NOS)
     Route: 042
     Dates: start: 20090331, end: 20090412
  3. EPOPROSTENOL SODIUM [Concomitant]
  4. LAUGHING GAS [Concomitant]
  5. DOPAMINE HYDROCHLORIDE [Concomitant]
  6. DOBUTAMINE HYDROCHLORIDE [Concomitant]
  7. AMIKACIN [Concomitant]
  8. CALCIUM GLUCONATE [Concomitant]

REACTIONS (4)
  - ALTERED STATE OF CONSCIOUSNESS [None]
  - HYPOTONIA [None]
  - PERITONEAL DIALYSIS [None]
  - RENAL IMPAIRMENT [None]
